FAERS Safety Report 9626859 (Version 2)
Quarter: 2014Q1

REPORT INFORMATION
  Report Type: Report from Study
  Country: JP (occurrence: JP)
  Receive Date: 20131016
  Receipt Date: 20140130
  Transmission Date: 20141002
  Serious: Yes (Hospitalization, Other)
  Sender: FDA-Public Use
  Company Number: JP-TAKEDA-TCI2013A06121

PATIENT
  Age: 81 Year
  Sex: Male
  Weight: 49 kg

DRUGS (8)
  1. LANSOPRAZOLE [Suspect]
     Indication: PROPHYLAXIS AGAINST GASTROINTESTINAL ULCER
     Dosage: 15 MG, QD
     Route: 048
     Dates: start: 20120914
  2. BAYASPIRIN [Concomitant]
     Indication: THROMBOSIS PROPHYLAXIS
     Dosage: 100 MG,1 DAYS
     Route: 048
  3. DIOVAN [Concomitant]
     Dosage: 40 MG, 1 DAYS
     Route: 048
  4. CARDENALIN [Concomitant]
     Dosage: 1 MG, 1 DAYS
     Route: 048
  5. NORVASC [Concomitant]
     Dosage: 5 MG,1 DAYS
     Route: 048
  6. MUCOSTA [Concomitant]
     Indication: ANGINA PECTORIS
     Dosage: 300 MG, 1 DAYS
     Route: 048
  7. PANTETHINE [Concomitant]
     Indication: CONSTIPATION
     Dosage: 300 MG, 1 DAYS
     Route: 048
  8. MAGNESIUM OXIDE [Concomitant]
     Indication: CONSTIPATION
     Dosage: 1.5 G, 1 DAYS
     Route: 048

REACTIONS (1)
  - Gastric cancer [Recovered/Resolved]
